FAERS Safety Report 13226262 (Version 1)
Quarter: 2017Q1

REPORT INFORMATION
  Report Type: Spontaneous
  Country: US (occurrence: US)
  Receive Date: 20170213
  Receipt Date: 20170213
  Transmission Date: 20170428
  Serious: No
  Sender: FDA-Public Use
  Company Number: US-PFIZER INC-2017056908

PATIENT
  Age: 53 Year
  Sex: Female
  Weight: 97.7 kg

DRUGS (1)
  1. XELJANZ [Suspect]
     Active Substance: TOFACITINIB CITRATE
     Indication: ARTHRITIS
     Dosage: 5 MG, 2X/DAY
     Route: 048
     Dates: start: 201701, end: 20170125

REACTIONS (4)
  - Chapped lips [Unknown]
  - Lip discolouration [Recovering/Resolving]
  - Lip pain [Unknown]
  - Fungal infection [Recovering/Resolving]
